FAERS Safety Report 22196933 (Version 1)
Quarter: 2023Q2

REPORT INFORMATION
  Report Type: Spontaneous
  Country: AR (occurrence: AR)
  Receive Date: 20230411
  Receipt Date: 20230411
  Transmission Date: 20230721
  Serious: Yes (Other)
  Sender: FDA-Public Use
  Company Number: AR-PFIZER INC-PV202300063310

PATIENT
  Age: 56 Year
  Sex: Female

DRUGS (1)
  1. ENBREL [Suspect]
     Active Substance: ETANERCEPT
     Indication: Rheumatoid arthritis
     Dosage: 50 MILLIGRAM, QWK
     Route: 065
     Dates: start: 20171219

REACTIONS (4)
  - Intervertebral disc protrusion [Not Recovered/Not Resolved]
  - Syncope [Not Recovered/Not Resolved]
  - Dizziness [Not Recovered/Not Resolved]
  - Rheumatoid factor increased [Not Recovered/Not Resolved]

NARRATIVE: CASE EVENT DATE: 20230401
